FAERS Safety Report 4412818-X (Version None)
Quarter: 2004Q3

REPORT INFORMATION
  Report Type: 
  Country: None (occurrence: None)
  Receive Date: 20040730
  Receipt Date: 20040730
  Transmission Date: 20050211
  Serious: Yes (Other)
  Sender: FDA-Public Use
  Company Number: None

PATIENT
  Sex: Male
  Weight: 95.2554 kg

DRUGS (2)
  1. PHENTERMINE [Suspect]
     Indication: WEIGHT CONTROL
     Dosage: PILL TABLET ONCE DAILY ORAL
     Route: 048
     Dates: start: 19980301, end: 19981101
  2. PHENTERMINE [Suspect]
     Indication: WEIGHT CONTROL
     Dosage: PILL TABLET ONCE DAILY ORAL
     Route: 048
     Dates: start: 20040110, end: 20040630

REACTIONS (1)
  - AMNESIA [None]
